FAERS Safety Report 5635338-3 (Version None)
Quarter: 2008Q1

REPORT INFORMATION
  Report Type: 
  Country: None (occurrence: None)
  Receive Date: 20080222
  Receipt Date: 20080211
  Transmission Date: 20080703
  Serious: Yes (Other)
  Sender: FDA-Public Use
  Company Number: US-PFIZER INC-2008013435

PATIENT
  Sex: Male
  Weight: 98.636 kg

DRUGS (9)
  1. LYRICA [Suspect]
     Indication: FIBROMYALGIA
     Dates: start: 20070101, end: 20071001
  2. HYDROCODONE BITARTRATE [Concomitant]
  3. METOCLOPRAMIDE [Concomitant]
  4. PAXIL CR [Concomitant]
  5. PROPRANOLOL [Concomitant]
  6. LIPITOR [Concomitant]
  7. DIABETA [Concomitant]
  8. ONE-A-DAY [Concomitant]
  9. ZANTAC 150 [Concomitant]

REACTIONS (10)
  - GAIT DISTURBANCE [None]
  - HYPOKINESIA [None]
  - MEMORY IMPAIRMENT [None]
  - MUSCLE ATROPHY [None]
  - MUSCULAR WEAKNESS [None]
  - SKIN DISORDER [None]
  - TREMOR [None]
  - VISION BLURRED [None]
  - VISUAL ACUITY REDUCED [None]
  - WEIGHT INCREASED [None]
